FAERS Safety Report 18852043 (Version 1)
Quarter: 2021Q1

REPORT INFORMATION
  Report Type: Spontaneous
  Country: US (occurrence: US)
  Receive Date: 20210204
  Receipt Date: 20210204
  Transmission Date: 20210420
  Serious: Yes (Life-Threatening)
  Sender: FDA-Public Use
  Company Number: None

PATIENT
  Age: 3 Week
  Sex: Male
  Weight: 5.7 kg

DRUGS (1)
  1. DIAZOXIDE 50MG/ML SUSPENSION [Suspect]
     Active Substance: DIAZOXIDE
     Indication: HYPERINSULINISM
     Dosage: ?          OTHER DOSE:41.5MG(15MG/KG/HR);OTHER ROUTE:NG?TUBE?
     Dates: start: 20210115, end: 20210119

REACTIONS (4)
  - Atrial septal defect [None]
  - Patent ductus arteriosus [None]
  - Ventricular septal defect [None]
  - Right-to-left cardiac shunt [None]

NARRATIVE: CASE EVENT DATE: 20210119
